FAERS Safety Report 5266878-7 (Version None)
Quarter: 2007Q1

REPORT INFORMATION
  Report Type: 
  Country: None (occurrence: None)
  Receive Date: 20061213
  Receipt Date: 20020503
  Transmission Date: 20070707
  Serious: Yes (Death)
  Sender: FDA-Public Use
  Company Number: 2002UW06251

PATIENT
  Age: 80 Year
  Sex: Female
  Weight: 77.1115 kg

DRUGS (3)
  1. TAMOXIFEN CITRATE [Suspect]
     Dates: start: 19990101
  2. ZESTRIL [Concomitant]
  3. K-DUR 10 [Concomitant]

REACTIONS (1)
  - ACUTE LEUKAEMIA [None]
